FAERS Safety Report 6045104-5 (Version None)
Quarter: 2009Q1

REPORT INFORMATION
  Report Type: 
  Country: None (occurrence: None)
  Receive Date: 20090121
  Receipt Date: 20090114
  Transmission Date: 20090719
  Serious: No
  Sender: FDA-Public Use
  Company Number: US-BIOGENIDEC-2008BI034704

PATIENT
  Age: 39 Year
  Sex: Male

DRUGS (2)
  1. TYSABRI [Suspect]
     Indication: MULTIPLE SCLEROSIS
     Route: 042
     Dates: start: 20070517, end: 20070517
  2. TYSABRI [Suspect]
     Route: 042
     Dates: start: 20081107

REACTIONS (2)
  - HYPERSENSITIVITY [None]
  - SLEEP APNOEA SYNDROME [None]
